FAERS Safety Report 18024822 (Version 1)
Quarter: 2020Q3

REPORT INFORMATION
  Report Type: Spontaneous
  Country: US (occurrence: US)
  Receive Date: 20200714
  Receipt Date: 20200714
  Transmission Date: 20201103
  Serious: Yes (Disabling, Other)
  Sender: FDA-Public Use
  Company Number: None

PATIENT
  Age: 19 Year
  Sex: Female
  Weight: 52.16 kg

DRUGS (1)
  1. NEXPLANON [Suspect]
     Active Substance: ETONOGESTREL
     Dates: start: 20181101

REACTIONS (7)
  - Haemorrhage [None]
  - Breast pain [None]
  - Depression [None]
  - Breast tenderness [None]
  - Migraine [None]
  - Anaemia [None]
  - Abdominal pain [None]

NARRATIVE: CASE EVENT DATE: 20190812
